FAERS Safety Report 15374201 (Version 1)
Quarter: 2018Q3

REPORT INFORMATION
  Report Type: Spontaneous
  Country: US (occurrence: US)
  Receive Date: 20180912
  Receipt Date: 20180912
  Transmission Date: 20181010
  Serious: No
  Sender: FDA-Public Use
  Company Number: US-BAYER-2018-169109

PATIENT
  Age: 48 Year
  Sex: Female

DRUGS (1)
  1. MIRENA [Suspect]
     Active Substance: LEVONORGESTREL
     Indication: CERVICAL DYSPLASIA
     Dosage: 20 MCG/24HR, CONT
     Route: 015
     Dates: start: 20180817

REACTIONS (7)
  - Pyrexia [Unknown]
  - Off label use [None]
  - Paraesthesia [Unknown]
  - Chills [Unknown]
  - Contraindicated product administered [None]
  - Product use in unapproved indication [None]
  - Hyperhidrosis [Unknown]

NARRATIVE: CASE EVENT DATE: 20180817
